FAERS Safety Report 6078028-8 (Version None)
Quarter: 2009Q1

REPORT INFORMATION
  Report Type: 
  Country: None (occurrence: None)
  Receive Date: 20090213
  Receipt Date: 20090204
  Transmission Date: 20090719
  Serious: Yes (Other)
  Sender: FDA-Public Use
  Company Number: US-PFIZER INC-2006118865

PATIENT
  Sex: Female
  Weight: 62.6 kg

DRUGS (1)
  1. CHANTIX [Suspect]
     Dates: start: 20060901

REACTIONS (2)
  - DEPRESSION [None]
  - MEMORY IMPAIRMENT [None]
